FAERS Safety Report 6516852-5 (Version None)
Quarter: 2009Q4

REPORT INFORMATION
  Report Type: 
  Country: None (occurrence: None)
  Receive Date: 20091223
  Receipt Date: 20091222
  Transmission Date: 20100525
  Serious: Yes (Other)
  Sender: FDA-Public Use
  Company Number: PHHO2009IT12725

PATIENT
  Sex: Female

DRUGS (3)
  1. CGS 20267 T30748+ [Suspect]
     Indication: BREAST CANCER
     Dosage: UNK
     Route: 048
     Dates: start: 20050805, end: 20050828
  2. ZOLEDRONATE T29581+ [Suspect]
     Indication: BONE DENSITY DECREASED
     Dosage: UNK
     Route: 042
     Dates: start: 20050805, end: 20050828
  3. TRIPTORELIN [Concomitant]
     Indication: BONE DENSITY DECREASED
     Dosage: UNK
     Dates: start: 20050805, end: 20050828

REACTIONS (2)
  - RASH MACULAR [None]
  - SKIN TOXICITY [None]
